FAERS Safety Report 9996012 (Version 1)
Quarter: 2014Q1

REPORT INFORMATION
  Report Type: Spontaneous
  Country: US (occurrence: None)
  Receive Date: 20140218
  Receipt Date: 20140218
  Transmission Date: 20141002
  Serious: Yes (Other)
  Sender: FDA-Public Use
  Company Number: 1000052649

PATIENT
  Age: 48 Year
  Sex: Female

DRUGS (1)
  1. VIIBRYD [Suspect]
     Dosage: 40MG (40 MG, 1 IN 1 D), ORAL
     Route: 048
     Dates: start: 201311, end: 201312

REACTIONS (1)
  - Drug ineffective [None]
